FAERS Safety Report 9745514 (Version 1)
Quarter: 2013Q4

REPORT INFORMATION
  Report Type: Spontaneous
  Country: US (occurrence: US)
  Receive Date: 20131211
  Receipt Date: 20131211
  Transmission Date: 20140711
  Serious: No
  Sender: FDA-Public Use
  Company Number: US-BIOGENIDEC-2013BI091308

PATIENT
  Age: 35 Year
  Sex: Male

DRUGS (4)
  1. TECFIDERA [Suspect]
     Indication: MULTIPLE SCLEROSIS
     Route: 048
     Dates: start: 20130831
  2. TECFIDERA [Suspect]
     Indication: MULTIPLE SCLEROSIS
     Route: 048
     Dates: start: 20130903
  3. IMODIUM [Concomitant]
  4. PROAIR [Concomitant]

REACTIONS (6)
  - Flatulence [Unknown]
  - Paraesthesia [Unknown]
  - Prescribed overdose [Unknown]
  - Abdominal pain upper [Unknown]
  - Flushing [Unknown]
  - Feeling hot [Unknown]
